FAERS Safety Report 4741074-8 (Version None)
Quarter: 2005Q3

REPORT INFORMATION
  Report Type: 
  Country: None (occurrence: None)
  Receive Date: 20050729
  Receipt Date: 20050302
  Transmission Date: 20060218
  Serious: Yes (Other)
  Sender: FDA-Public Use
  Company Number: 2005S1000892

PATIENT
  Age: 73 Year
  Sex: Female

DRUGS (9)
  1. APOMORPHINE HYDROCHLORIDE (APOMORPHINE HYDROCHLORIDE ) [Suspect]
     Indication: PARKINSON'S DISEASE
     Dosage: 4 MG/HR;SC
     Dates: start: 20040901
  2. TOLTERODINE [Concomitant]
  3. AMANTADINE [Concomitant]
  4. ASPIRIN [Concomitant]
  5. SELEGILINE HCL [Concomitant]
  6. DOMPERIDONE [Concomitant]
  7. BENDROFLUMETHIAZIDE [Concomitant]
  8. CABERGOLINE [Concomitant]
  9. CARBIDOPA AND LEVODOPA [Concomitant]

REACTIONS (3)
  - PERIPHERAL COLDNESS [None]
  - RAYNAUD'S PHENOMENON [None]
  - VASOSPASM [None]
